FAERS Safety Report 16199003 (Version 1)
Quarter: 2019Q2

REPORT INFORMATION
  Report Type: Spontaneous
  Country: US (occurrence: US)
  Receive Date: 20190415
  Receipt Date: 20190415
  Transmission Date: 20190711
  Serious: No
  Sender: FDA-Public Use
  Company Number: US-TEVA-2019-US-1032734

PATIENT
  Age: 42 Year
  Sex: Female

DRUGS (1)
  1. NORTREL [Suspect]
     Active Substance: ETHINYL ESTRADIOL\NORETHINDRONE
     Indication: MENORRHAGIA
     Dosage: DOSE STRENGTH:  0.5 NORETHINDRONE/0.035 ETHINYL ESTRADIOL,0.75 NORETHINDRONE/0.035 ETHINYL ESTRADIO
     Dates: start: 20190314

REACTIONS (7)
  - Vaginal haemorrhage [Unknown]
  - Product dose omission [Unknown]
  - Product use in unapproved indication [Unknown]
  - Drug intolerance [Unknown]
  - Gastrointestinal disorder [Unknown]
  - Morning sickness [Unknown]
  - Product prescribing error [Unknown]

NARRATIVE: CASE EVENT DATE: 20190314
